FAERS Safety Report 5007226-7 (Version None)
Quarter: 2006Q1

REPORT INFORMATION
  Report Type: 
  Country: None (occurrence: None)
  Receive Date: 20060320
  Receipt Date: 20050317
  Transmission Date: 20060701
  Serious: Yes (Other)
  Sender: FDA-Public Use
  Company Number: 2005-03-1405

PATIENT
  Age: 44 Year
  Sex: Female
  Weight: 54.8852 kg

DRUGS (3)
  1. PEG-INTRON [Suspect]
     Indication: HEPATITIS C
     Dosage: 80 MCG QW SUBCUTANEOUS
     Route: 058
     Dates: start: 20050124, end: 20050303
  2. RIBAVIRIN [Suspect]
     Indication: HEPATITIS C
     Dosage: ORAL
     Route: 048
     Dates: end: 20050225
  3. BENADRYL [Concomitant]

REACTIONS (3)
  - ALOPECIA [None]
  - HYPERTHYROIDISM [None]
  - PRURITUS GENERALISED [None]
